FAERS Safety Report 24138288 (Version 5)
Quarter: 2025Q1

REPORT INFORMATION
  Report Type: Spontaneous
  Country: CA (occurrence: CA)
  Receive Date: 20240725
  Receipt Date: 20250217
  Transmission Date: 20250409
  Serious: Yes (Death, Hospitalization, Other)
  Sender: PFIZER
  Company Number: CA-PFIZER INC-202400220931

PATIENT
  Age: 77 Year
  Sex: Female

DRUGS (19)
  1. ABRILADA [Suspect]
     Active Substance: ADALIMUMAB-AFZB
     Indication: Rheumatoid arthritis
     Route: 058
     Dates: start: 20240706, end: 202407
  2. ABRILADA [Suspect]
     Active Substance: ADALIMUMAB-AFZB
     Route: 058
     Dates: start: 2024
  3. ASPIRIN [Concomitant]
     Active Substance: ASPIRIN
  4. ASPIRIN [Concomitant]
     Active Substance: ASPIRIN
  5. CHOLECALCIFEROL [Concomitant]
     Active Substance: CHOLECALCIFEROL
  6. CRESTOR [Concomitant]
     Active Substance: ROSUVASTATIN CALCIUM
  7. CRESTOR [Concomitant]
     Active Substance: ROSUVASTATIN CALCIUM
  8. LEFLUNOMIDE [Concomitant]
     Active Substance: LEFLUNOMIDE
     Indication: Rheumatoid arthritis
     Route: 048
  9. LEFLUNOMIDE [Concomitant]
     Active Substance: LEFLUNOMIDE
     Route: 048
  10. METHIMAZOLE [Concomitant]
     Active Substance: METHIMAZOLE
     Route: 048
  11. METHIMAZOLE [Concomitant]
     Active Substance: METHIMAZOLE
     Route: 048
  12. HYDROCHLOROTHIAZIDE\RAMIPRIL [Concomitant]
     Active Substance: HYDROCHLOROTHIAZIDE\RAMIPRIL
  13. HYDROCHLOROTHIAZIDE\RAMIPRIL [Concomitant]
     Active Substance: HYDROCHLOROTHIAZIDE\RAMIPRIL
  14. PANTOPRAZOLE [Concomitant]
     Active Substance: PANTOPRAZOLE
  15. PANTOPRAZOLE [Concomitant]
     Active Substance: PANTOPRAZOLE
  16. PREDNISONE [Concomitant]
     Active Substance: PREDNISONE
     Route: 048
  17. PREDNISONE [Concomitant]
     Active Substance: PREDNISONE
     Route: 048
  18. ACETAMINOPHEN\TRAMADOL [Concomitant]
     Active Substance: ACETAMINOPHEN\TRAMADOL
  19. ACETAMINOPHEN\TRAMADOL [Concomitant]
     Active Substance: ACETAMINOPHEN\TRAMADOL

REACTIONS (4)
  - Infection [Fatal]
  - Limb injury [Unknown]
  - Post procedural sepsis [Unknown]
  - Abdominal operation [Unknown]

NARRATIVE: CASE EVENT DATE: 20240101
